FAERS Safety Report 15306140 (Version 1)
Quarter: 2018Q3

REPORT INFORMATION
  Report Type: Spontaneous
  Country: US (occurrence: US)
  Receive Date: 20180822
  Receipt Date: 20180822
  Transmission Date: 20181010
  Serious: No
  Sender: FDA-Public Use
  Company Number: US-PFIZER INC-2018336290

PATIENT
  Age: 48 Year
  Sex: Female
  Weight: 89.36 kg

DRUGS (2)
  1. GABAPENTIN. [Suspect]
     Active Substance: GABAPENTIN
     Indication: NEUROPATHY PERIPHERAL
  2. GABAPENTIN. [Suspect]
     Active Substance: GABAPENTIN
     Indication: NEURALGIA
     Dosage: 600MG, TWO TABLETS, BY MOUTH, TWICE A DAY
     Route: 048

REACTIONS (1)
  - Drug ineffective for unapproved indication [Unknown]
